FAERS Safety Report 19258786 (Version 1)
Quarter: 2021Q2

REPORT INFORMATION
  Report Type: Spontaneous
  Country: CA (occurrence: CA)
  Receive Date: 20210514
  Receipt Date: 20210514
  Transmission Date: 20210717
  Serious: Yes (Hospitalization)
  Sender: FDA-Public Use
  Company Number: CA-ASTRAZENECA-2021A327763

PATIENT
  Age: 1043 Month
  Sex: Female

DRUGS (7)
  1. METOPROLOL. [Concomitant]
     Active Substance: METOPROLOL
  2. COVID 19 VACCINE [Concomitant]
     Dates: start: 20210329
  3. BRILINTA [Suspect]
     Active Substance: TICAGRELOR
     Indication: MYOCARDIAL INFARCTION
     Route: 048
     Dates: start: 202101
  4. LISINOPRIL. [Concomitant]
     Active Substance: LISINOPRIL
  5. VITAMIN D [Concomitant]
     Active Substance: VITAMIN D NOS
     Dosage: 1000, AFTER THAT HAS HAD 2 PFIZER VACCINES
  6. ATORVASTATIN [Concomitant]
     Active Substance: ATORVASTATIN
     Dosage: 40MG IN THE EVENING BEFORE BED
  7. ASPIRIN. [Concomitant]
     Active Substance: ASPIRIN
     Dosage: 81MG IN THE MORNING

REACTIONS (4)
  - Rash macular [Not Recovered/Not Resolved]
  - Blood test abnormal [Unknown]
  - Weight decreased [Recovered/Resolved]
  - Contusion [Not Recovered/Not Resolved]

NARRATIVE: CASE EVENT DATE: 202101
